FAERS Safety Report 9254430 (Version 1)
Quarter: 2013Q1

REPORT INFORMATION
  Report Type: Spontaneous
  Country: US (occurrence: None)
  Receive Date: 20121203
  Receipt Date: 20121203
  Transmission Date: 20140127
  Serious: Yes (Hospitalization, Other)
  Sender: FDA-Public Use
  Company Number: 2012SP024808

PATIENT
  Age: 31 Year
  Sex: Female
  Weight: 74.4 kg

DRUGS (2)
  1. NUVARING (ETONOGESTREL (+) ETHINYL ESTRADIOL) VAGINAL RING [Suspect]
     Indication: CONTRACEPTION
     Route: 067
     Dates: start: 20100217, end: 20100708
  2. HYDROCHLOROTHIAZIDE (HYDROCHLOROTHIAZIDE) [Concomitant]

REACTIONS (16)
  - Pulmonary embolism [None]
  - Papilloma viral infection [None]
  - Rubber sensitivity [None]
  - International normalised ratio decreased [None]
  - Pleurisy [None]
  - Dysmenorrhoea [None]
  - Pneumonia [None]
  - Upper respiratory tract infection [None]
  - Arthralgia [None]
  - Treatment noncompliance [None]
  - Diabetes mellitus [None]
  - Blood cholesterol increased [None]
  - Hypertension [None]
  - Pain [None]
  - Chest pain [None]
  - Anticoagulation drug level below therapeutic [None]
